FAERS Safety Report 15093461 (Version 1)
Quarter: 2018Q3

REPORT INFORMATION
  Report Type: Spontaneous
  Country: NL (occurrence: NL)
  Receive Date: 20180629
  Receipt Date: 20180629
  Transmission Date: 20181010
  Serious: Yes (Other)
  Sender: FDA-Public Use
  Company Number: NL-TEVA-2018-NL-916233

PATIENT
  Age: 61 Year
  Sex: Female

DRUGS (3)
  1. AUGMENTIN [Concomitant]
     Active Substance: AMOXICILLIN\CLAVULANATE POTASSIUM
  2. DICLOFENAC [Concomitant]
     Active Substance: DICLOFENAC
  3. IBUPROFENUM TABLET 400MG TABLET, 400 MG (MILLIGRAM) [Suspect]
     Active Substance: IBUPROFEN
     Indication: PRODUCT USED FOR UNKNOWN INDICATION
     Dosage: NOT EXACTLY KNOWN; CERTAINLY 10 TO 12 TBL / DAY + DICLOFENAC AND AUGMENTIN
     Route: 065
     Dates: start: 201805

REACTIONS (1)
  - Drug-induced liver injury [Recovering/Resolving]

NARRATIVE: CASE EVENT DATE: 20180504
